FAERS Safety Report 5999119-3 (Version None)
Quarter: 2008Q4

REPORT INFORMATION
  Report Type: 
  Country: None (occurrence: None)
  Receive Date: 20081215
  Receipt Date: 20081204
  Transmission Date: 20090506
  Serious: Yes (Other)
  Sender: FDA-Public Use
  Company Number: US-WYE-H04795208

PATIENT
  Sex: Female

DRUGS (7)
  1. PREMPRO [Suspect]
  2. PROVERA [Suspect]
  3. MEDROXYPROGESTERONE ACETATE [Suspect]
  4. ESTRATEST [Suspect]
  5. ESTRADIOL [Suspect]
  6. PREMARIN [Suspect]
  7. AMEN [Suspect]

REACTIONS (1)
  - BREAST CANCER METASTATIC [None]
